FAERS Safety Report 4370016-2 (Version None)
Quarter: 2004Q2

REPORT INFORMATION
  Report Type: 
  Country: None (occurrence: None)
  Receive Date: 20040603
  Receipt Date: 20040524
  Transmission Date: 20050107
  Serious: Yes (Hospitalization)
  Sender: FDA-Public Use
  Company Number: PHRM2004FR01942

PATIENT
  Sex: Female

DRUGS (4)
  1. COTAREG [Suspect]
     Indication: HYPERTENSION
     Dosage: 1 DF, QD
     Route: 048
  2. CORDARONE [Suspect]
     Indication: ATRIAL FIBRILLATION
  3. LASILIX [Concomitant]
  4. DIGOXIN [Concomitant]

REACTIONS (3)
  - HYPOKALAEMIA [None]
  - LOSS OF CONSCIOUSNESS [None]
  - TORSADE DE POINTES [None]
